FAERS Safety Report 8780360 (Version 1)
Quarter: 2012Q4

REPORT INFORMATION
  Report Type: Spontaneous
  Country: US (occurrence: None)
  Receive Date: 20120905
  Receipt Date: 20120905
  Transmission Date: 20130627
  Serious: Yes (Other)
  Sender: FDA-Public Use
  Company Number: None

PATIENT
  Age: 14 Year
  Weight: 54.43 kg

DRUGS (3)
  1. NATAZIA [Suspect]
     Indication: BLEEDING MENSTRUAL HEAVY
     Dosage: 1 pill a day
     Dates: start: 20120415, end: 20120502
  2. NATAZIA [Suspect]
     Indication: MENSTRUAL DISORDER
  3. LOVENOX [Concomitant]

REACTIONS (3)
  - Skin discolouration [None]
  - Sensory loss [None]
  - Thrombosis [None]
